FAERS Safety Report 5500633-5 (Version None)
Quarter: 2007Q4

REPORT INFORMATION
  Report Type: 
  Country: None (occurrence: None)
  Receive Date: 20071022
  Receipt Date: 20070815
  Transmission Date: 20080405
  Serious: No
  Sender: FDA-Public Use
  Company Number: SPV1-2007-03873

PATIENT
  Age: 48 Year
  Sex: Male

DRUGS (2)
  1. VYVANSE [Suspect]
     Indication: ATTENTION DEFICIT/HYPERACTIVITY DISORDER
     Dosage: 100 MG, 1X/DAY:QD AM
     Dates: start: 20070801
  2. CYMBALTA [Concomitant]

REACTIONS (5)
  - AMNESIA [None]
  - DISORIENTATION [None]
  - INSOMNIA [None]
  - OFF LABEL USE [None]
  - OVERDOSE [None]
